FAERS Safety Report 5600145-4 (Version None)
Quarter: 2008Q1

REPORT INFORMATION
  Report Type: 
  Country: None (occurrence: None)
  Receive Date: 20080123
  Receipt Date: 20080122
  Transmission Date: 20080703
  Serious: Yes (Other)
  Sender: FDA-Public Use
  Company Number: B0504815A

PATIENT
  Age: 58 Year
  Sex: Male

DRUGS (1)
  1. DILATREND [Suspect]
     Indication: DRUG USE FOR UNKNOWN INDICATION
     Route: 065

REACTIONS (5)
  - DIZZINESS [None]
  - HYPOTENSION [None]
  - PAIN IN EXTREMITY [None]
  - RENAL FAILURE [None]
  - WEIGHT INCREASED [None]
